FAERS Safety Report 7788805-0 (Version None)
Quarter: 2011Q3

REPORT INFORMATION
  Report Type: 
  Country: None (occurrence: None)
  Receive Date: 20110930
  Receipt Date: 20110922
  Transmission Date: 20111222
  Serious: Yes (Hospitalization)
  Sender: FDA-Public Use
  Company Number: US-UCBSA-041977

PATIENT
  Sex: Female
  Weight: 117.9 kg

DRUGS (2)
  1. CIMZIA [Suspect]
     Indication: CROHN'S DISEASE
     Route: 058
     Dates: start: 20110101
  2. COUMADIN [Concomitant]
     Dosage: ONE PER DAY
     Route: 048
     Dates: end: 20110901

REACTIONS (4)
  - HERNIA [None]
  - GASTROINTESTINAL STOMA COMPLICATION [None]
  - NAUSEA [None]
  - MALAISE [None]
